FAERS Safety Report 17579737 (Version 1)
Quarter: 2020Q1

REPORT INFORMATION
  Report Type: Report from Study
  Country: DZ (occurrence: DZ)
  Receive Date: 20200325
  Receipt Date: 20200325
  Transmission Date: 20200409
  Serious: Yes (Death, Other)
  Sender: FDA-Public Use
  Company Number: DZ-BAYER-2020-050514

PATIENT
  Sex: Female

DRUGS (1)
  1. BETAFERON [Suspect]
     Active Substance: INTERFERON BETA-1B
     Indication: MULTIPLE SCLEROSIS
     Dosage: 1 ML
     Route: 058
     Dates: start: 2015

REACTIONS (2)
  - Death [Fatal]
  - Gastric cancer [None]

NARRATIVE: CASE EVENT DATE: 202002
